FAERS Safety Report 23981881 (Version 1)
Quarter: 2024Q2

REPORT INFORMATION
  Report Type: Spontaneous
  Country: CN (occurrence: CN)
  Receive Date: 20240617
  Receipt Date: 20240617
  Transmission Date: 20240716
  Serious: Yes (Other)
  Sender: FDA-Public Use
  Company Number: CN-JNJFOC-20240622208

PATIENT
  Age: 27 Year
  Sex: Female
  Weight: 50 kg

DRUGS (5)
  1. ACETAMINOPHEN [Suspect]
     Active Substance: ACETAMINOPHEN
     Indication: Pyrexia
     Route: 048
     Dates: start: 20240501
  2. LORNOXICAM [Suspect]
     Active Substance: LORNOXICAM
     Indication: Analgesic therapy
     Route: 042
     Dates: start: 20240429
  3. CODEINE PHOSPHATE\IBUPROFEN [Suspect]
     Active Substance: CODEINE PHOSPHATE\IBUPROFEN
     Indication: Analgesic therapy
     Route: 048
     Dates: start: 20240430
  4. YUNNAN BAIYAO [Suspect]
     Active Substance: CAMPHOR (SYNTHETIC)\MENTHOL\METHYL SALICYLATE
     Indication: Haemostasis
     Route: 048
     Dates: start: 20240430
  5. BATROXOBIN [Suspect]
     Active Substance: BATROXOBIN
     Indication: Haemostasis
     Route: 065
     Dates: start: 20240429

REACTIONS (3)
  - Neutrophil count increased [Recovering/Resolving]
  - Alanine aminotransferase increased [Recovering/Resolving]
  - Aspartate aminotransferase increased [Recovering/Resolving]

NARRATIVE: CASE EVENT DATE: 20240502
